FAERS Safety Report 4774013-4 (Version None)
Quarter: 2005Q3

REPORT INFORMATION
  Report Type: 
  Country: None (occurrence: None)
  Receive Date: 20050920
  Receipt Date: 20050711
  Transmission Date: 20060218
  Serious: Yes (Hospitalization, Other)
  Sender: FDA-Public Use
  Company Number: 200511471DE

PATIENT
  Age: 63 Year
  Sex: Female

DRUGS (1)
  1. AMARYL [Suspect]
     Indication: DIABETES MELLITUS
     Route: 048
     Dates: start: 20040101

REACTIONS (1)
  - HEPATIC CIRRHOSIS [None]
